FAERS Safety Report 10141313 (Version 2)
Quarter: 2014Q2

REPORT INFORMATION
  Report Type: Spontaneous
  Country: FR (occurrence: FR)
  Receive Date: 20140429
  Receipt Date: 20140429
  Transmission Date: 20141212
  Serious: Yes (Other)
  Sender: FDA-Public Use
  Company Number: ALCN2013FR006093

PATIENT
  Age: 61 Year
  Sex: Male
  Weight: 80 kg

DRUGS (1)
  1. TRAVATAN PQ [Suspect]
     Indication: OFF LABEL USE
     Dosage: UNK
     Route: 047
     Dates: start: 20130304, end: 20130318

REACTIONS (4)
  - Off label use [Not Recovered/Not Resolved]
  - Ageusia [Not Recovered/Not Resolved]
  - Anosmia [Not Recovered/Not Resolved]
  - Epistaxis [Recovered/Resolved]
